FAERS Safety Report 9318185 (Version 1)
Quarter: 2013Q2

REPORT INFORMATION
  Report Type: Spontaneous
  Country: FR (occurrence: None)
  Receive Date: 20130524
  Receipt Date: 20130524
  Transmission Date: 20140414
  Serious: Yes (Hospitalization)
  Sender: FDA-Public Use
  Company Number: HRA-CDB20130063

PATIENT
  Age: 33 Year
  Sex: Female

DRUGS (1)
  1. ELLAONE [Suspect]
     Indication: PRODUCT USED FOR UNKNOWN INDICATION
     Dosage: IN 1 DAY
     Route: 048
     Dates: start: 20120202

REACTIONS (6)
  - Microcytic anaemia [None]
  - Cerebral infarction [None]
  - Mitral valve incompetence [None]
  - Aortic valve incompetence [None]
  - Haemorrhoids [None]
  - Cervix oedema [None]
